FAERS Safety Report 7021368-6 (Version None)
Quarter: 2010Q3

REPORT INFORMATION
  Report Type: 
  Country: None (occurrence: None)
  Receive Date: 20100929
  Receipt Date: 20100916
  Transmission Date: 20110219
  Serious: No
  Sender: FDA-Public Use
  Company Number: US-PFIZER INC-2007100665

PATIENT
  Sex: Female
  Weight: 68.027 kg

DRUGS (7)
  1. CHANTIX [Suspect]
     Indication: SMOKING CESSATION THERAPY
     Dosage: 0.5 MG, 1X/DAY
     Dates: start: 20071122, end: 20071101
  2. CHANTIX [Suspect]
     Dosage: 1 MG, 2X/DAY
     Dates: start: 20071101
  3. CHANTIX [Suspect]
     Dosage: 0.5 MG, 1X/DAY
     Route: 048
     Dates: start: 20080101
  4. CHANTIX [Suspect]
     Dosage: UNK
     Dates: start: 20080101
  5. ATACAND [Concomitant]
     Indication: HYPERTENSION
     Dosage: UNK
  6. ACETYLSALICYLIC ACID [Concomitant]
  7. CAFFEINE [Concomitant]

REACTIONS (8)
  - ABNORMAL DREAMS [None]
  - DRY EYE [None]
  - HEADACHE [None]
  - NASOPHARYNGITIS [None]
  - NAUSEA [None]
  - POOR QUALITY SLEEP [None]
  - SNEEZING [None]
  - SOMNOLENCE [None]
